FAERS Safety Report 6240630-8 (Version None)
Quarter: 2009Q2

REPORT INFORMATION
  Report Type: 
  Country: None (occurrence: None)
  Receive Date: 20090623
  Receipt Date: 20081112
  Transmission Date: 20091009
  Serious: No
  Sender: FDA-Public Use
  Company Number: US-ASTRAZENECA-2008UW25349

PATIENT
  Age: 6 Year
  Sex: Female
  Weight: 17.2 kg

DRUGS (5)
  1. PULMICORT FLEXHALER [Suspect]
     Indication: ASTHMA EXERCISE INDUCED
     Dosage: 90 UG 2 PUFFS TWO TIMED A DAY
     Route: 055
     Dates: start: 20080801
  2. PULMICORT RESPULES [Concomitant]
  3. SINGULAIR [Concomitant]
  4. XOPENEX [Concomitant]
  5. AUGMENTIN [Concomitant]

REACTIONS (1)
  - TOOTH DISCOLOURATION [None]
